FAERS Safety Report 9197920 (Version 1)
Quarter: 2013Q1

REPORT INFORMATION
  Report Type: Spontaneous
  Country: US (occurrence: US)
  Receive Date: 20130328
  Receipt Date: 20130328
  Transmission Date: 20140127
  Serious: Yes (Other)
  Sender: FDA-Public Use
  Company Number: CHPA2013US005288

PATIENT
  Sex: Male

DRUGS (3)
  1. BUCKLEY^S COUGH MIXTURE [Suspect]
     Indication: NASOPHARYNGITIS
     Dosage: UNK, PRN
     Route: 048
  2. BUCKLEY^S COUGH MIXTURE [Suspect]
     Indication: COUGH
  3. ANTIBIOTICS [Concomitant]

REACTIONS (4)
  - Cyanosis [Unknown]
  - Lip swelling [Unknown]
  - Lip dry [Unknown]
  - Expired drug administered [Unknown]
